FAERS Safety Report 5290310-0 (Version None)
Quarter: 2007Q2

REPORT INFORMATION
  Report Type: 
  Country: None (occurrence: None)
  Receive Date: 20070409
  Receipt Date: 20070328
  Transmission Date: 20071010
  Serious: Yes (Death, Hospitalization)
  Sender: FDA-Public Use
  Company Number: FR-ELI_LILLY_AND_COMPANY-FR200702004544

PATIENT
  Age: 57 Year
  Sex: Male

DRUGS (4)
  1. GEMZAR [Suspect]
     Indication: PANCREATIC CARCINOMA METASTATIC
     Dosage: 1000 MG/M2, OTHER
     Route: 042
     Dates: start: 20060601
  2. GLYBURIDE [Concomitant]
     Dosage: UNK, UNKNOWN
     Route: 048
  3. METFORMIN HCL [Concomitant]
     Dosage: UNK, UNKNOWN
     Route: 048
  4. LASIX [Concomitant]
     Dosage: UNK, UNKNOWN
     Route: 048

REACTIONS (4)
  - ACUTE RESPIRATORY DISTRESS SYNDROME [None]
  - DIFFUSE ALVEOLAR DAMAGE [None]
  - HAEMOGLOBIN DECREASED [None]
  - PULMONARY OEDEMA [None]
